FAERS Safety Report 19684120 (Version 1)
Quarter: 2021Q3

REPORT INFORMATION
  Report Type: Spontaneous
  Country: US (occurrence: US)
  Receive Date: 20210811
  Receipt Date: 20210811
  Transmission Date: 20211014
  Serious: No
  Sender: FDA-Public Use
  Company Number: NVSC2021US180130

PATIENT
  Age: 59 Year
  Sex: Female

DRUGS (1)
  1. NILOTINIB [Suspect]
     Active Substance: NILOTINIB
     Indication: CHRONIC MYELOID LEUKAEMIA
     Dosage: 400 MG, QD
     Route: 065
     Dates: start: 2016, end: 2017

REACTIONS (4)
  - Drug resistance [Unknown]
  - Thrombocytosis [Unknown]
  - Drug intolerance [Unknown]
  - Osteoporosis [Unknown]
